FAERS Safety Report 9203226 (Version 1)
Quarter: 2013Q2

REPORT INFORMATION
  Report Type: Spontaneous
  Country: US (occurrence: US)
  Receive Date: 20130402
  Receipt Date: 20130402
  Transmission Date: 20140414
  Serious: Yes (Hospitalization)
  Sender: FDA-Public Use
  Company Number: US-JNJFOC-20130315733

PATIENT
  Age: 26 Year
  Sex: Female

DRUGS (1)
  1. REMICADE [Suspect]
     Indication: CROHN^S DISEASE
     Dosage: ASSUMED THAT SHE WAS RECEIVING A 5 MG/KG DOSE
     Route: 042
     Dates: start: 2013

REACTIONS (3)
  - Staphylococcal infection [Unknown]
  - Vomiting [Unknown]
  - Nausea [Unknown]
